FAERS Safety Report 18693399 (Version 1)
Quarter: 2021Q1

REPORT INFORMATION
  Report Type: Spontaneous
  Country: RU (occurrence: RU)
  Receive Date: 20210104
  Receipt Date: 20210104
  Transmission Date: 20210419
  Serious: Yes (Life-Threatening, Hospitalization, Other)
  Sender: FDA-Public Use
  Company Number: RU-LUPIN PHARMACEUTICALS INC.-2020-11203

PATIENT
  Age: 35 Year
  Sex: Male
  Weight: 85 kg

DRUGS (4)
  1. CLARITHROMYCIN. [Suspect]
     Active Substance: CLARITHROMYCIN
     Indication: COVID-19
     Dosage: UNK
     Route: 065
     Dates: start: 202004, end: 20200503
  2. METHYLPREDNISOLONE. [Suspect]
     Active Substance: METHYLPREDNISOLONE
     Dosage: 4 MILLIGRAM, QD
     Route: 048
     Dates: start: 2019
  3. HYDROXYCHLOROQUINE [Suspect]
     Active Substance: HYDROXYCHLOROQUINE
     Indication: COVID-19
     Dosage: UNKNOWN
     Route: 065
     Dates: start: 202004, end: 20200503
  4. METHYLPREDNISOLONE. [Suspect]
     Active Substance: METHYLPREDNISOLONE
     Indication: SERPIGINOUS CHOROIDITIS
     Dosage: 1000 MILLIGRAM, UNK (CUMULATIVE PULSE DOSE)
     Route: 065
     Dates: start: 201904

REACTIONS (4)
  - Myocardial infarction [Recovering/Resolving]
  - Coronary artery dissection [Recovering/Resolving]
  - Acute coronary syndrome [Recovering/Resolving]
  - Off label use [Unknown]

NARRATIVE: CASE EVENT DATE: 20200421
